FAERS Safety Report 9901647 (Version 2)
Quarter: 2014Q1

REPORT INFORMATION
  Report Type: Spontaneous
  Country: US (occurrence: US)
  Receive Date: 20140217
  Receipt Date: 20140217
  Transmission Date: 20141002
  Serious: Yes (Hospitalization)
  Sender: FDA-Public Use
  Company Number: US-GILEAD-2011-0043515

PATIENT
  Sex: Female

DRUGS (4)
  1. LETAIRIS [Suspect]
     Indication: PULMONARY ARTERIAL HYPERTENSION
     Route: 048
     Dates: start: 20071019
  2. LETAIRIS [Suspect]
     Indication: SYSTEMIC SCLEROSIS
  3. LETAIRIS [Suspect]
     Indication: MIXED CONNECTIVE TISSUE DISEASE
  4. REVATIO [Concomitant]

REACTIONS (1)
  - Dyspnoea [Unknown]
